FAERS Safety Report 9805452 (Version 1)
Quarter: 2014Q1

REPORT INFORMATION
  Report Type: Spontaneous
  Country: US (occurrence: None)
  Receive Date: 20140107
  Receipt Date: 20140107
  Transmission Date: 20141002
  Serious: Yes (Hospitalization, Other)
  Sender: FDA-Public Use
  Company Number: ADR-2014-00019

PATIENT
  Sex: Male

DRUGS (1)
  1. BACLOFEN [Suspect]
     Indication: MUSCLE SPASTICITY
     Dosage: 305 MCG/DAY

REACTIONS (12)
  - Device breakage [None]
  - Device dislocation [None]
  - Muscle spasticity [None]
  - Overdose [None]
  - Lethargy [None]
  - Sensation of heaviness [None]
  - Gait disturbance [None]
  - Somnolence [None]
  - Muscular weakness [None]
  - Dysstasia [None]
  - Device dislocation [None]
  - Incorrect dose administered [None]
